FAERS Safety Report 24578769 (Version 2)
Quarter: 2024Q4

REPORT INFORMATION
  Report Type: Spontaneous
  Country: JP (occurrence: JP)
  Receive Date: 20241105
  Receipt Date: 20241210
  Transmission Date: 20250115
  Serious: Yes (Hospitalization, Other)
  Sender: ASTELLAS
  Company Number: JP-ASTELLAS-2024-AER-015499

PATIENT
  Age: 82 Year
  Sex: Male
  Weight: 50 kg

DRUGS (5)
  1. PADCEV [Suspect]
     Active Substance: ENFORTUMAB VEDOTIN\ENFORTUMAB VEDOTIN-EJFV
     Indication: Transitional cell carcinoma
     Dosage: 62.5 MG, ONCE WEEKLY FOR 2 CONSECUTIVE WEEKS, FOLLOWED BY INTERRUPTION AT WEEK 3
     Route: 042
     Dates: start: 20241030, end: 20241106
  2. PADCEV [Suspect]
     Active Substance: ENFORTUMAB VEDOTIN\ENFORTUMAB VEDOTIN-EJFV
     Route: 042
     Dates: start: 20241204
  3. PEMBROLIZUMAB [Concomitant]
     Active Substance: PEMBROLIZUMAB
     Indication: Transitional cell carcinoma
     Route: 065
  4. PEMBROLIZUMAB [Concomitant]
     Active Substance: PEMBROLIZUMAB
     Route: 065
     Dates: start: 20241204
  5. POLARAMINE Injection 5mg [Concomitant]
     Indication: Infusion related reaction
     Route: 065
     Dates: start: 20241030

REACTIONS (2)
  - Infusion related reaction [Recovered/Resolved]
  - Erythema [Recovered/Resolved]

NARRATIVE: CASE EVENT DATE: 20241030
